FAERS Safety Report 9664312 (Version 2)
Quarter: 2014Q1

REPORT INFORMATION
  Report Type: Spontaneous
  Country: FR (occurrence: FR)
  Receive Date: 20131101
  Receipt Date: 20140218
  Transmission Date: 20141002
  Serious: Yes (Other)
  Sender: FDA-Public Use
  Company Number: FR-PFIZER INC-2013306814

PATIENT
  Age: 82 Year
  Sex: Male

DRUGS (17)
  1. ARACYTINE [Suspect]
     Indication: DIFFUSE LARGE B-CELL LYMPHOMA
     Dosage: 2000 MG ON DAY 1 AND 2 OF EVERY 21-DAY
     Route: 042
     Dates: start: 20130522, end: 20130905
  2. MABTHERA [Suspect]
     Indication: DIFFUSE LARGE B-CELL LYMPHOMA
     Dosage: 600 MG ON DAY 1 OF EVERY 21-DAY
     Route: 042
     Dates: start: 20130522, end: 20130905
  3. CARBOPLATIN SUN [Suspect]
     Indication: DIFFUSE LARGE B-CELL LYMPHOMA
     Dosage: 300 MG ON DAY 2 OF EVERY 21-DAY
     Route: 042
     Dates: start: 20130522, end: 20130905
  4. CORTANCYL [Suspect]
     Indication: DIFFUSE LARGE B-CELL LYMPHOMA
     Dosage: 60 MG FROM DAY 1 TO 5 OF EVERY 21-DAY
     Route: 042
     Dates: start: 20130522, end: 20130905
  5. BACTRIM [Suspect]
     Indication: PROPHYLAXIS
     Dosage: 1 DF, THRICE WEEKLY
     Route: 048
     Dates: start: 20130522, end: 20130927
  6. ZELITREX [Suspect]
     Indication: PROPHYLAXIS
     Dosage: 500 MG, 2X/DAY
     Route: 048
     Dates: start: 20130522, end: 20130927
  7. DOMPERIDONE [Suspect]
     Indication: PROPHYLAXIS
     Dosage: UNK
     Route: 048
     Dates: start: 20130522, end: 20130927
  8. ACEBUTOLOL [Concomitant]
     Dosage: 200 MG, DAILY
  9. AMLOR [Concomitant]
     Dosage: 10 MG, DAILY
  10. HYTACAND [Concomitant]
     Dosage: 16 MG, DAILY
  11. CRESTOR [Concomitant]
     Dosage: 10 MG, DAILY
  12. OMEPRAZOLE [Concomitant]
     Dosage: 20 MG, DAILY
  13. KARDEGIC [Concomitant]
     Dosage: 160 MG, DAILY
  14. PERMIXON [Concomitant]
     Dosage: 2 DF, DAILY
  15. ZYLORIC [Concomitant]
     Indication: PROPHYLAXIS
     Dosage: 300 MG, DAILY
     Dates: start: 20130522
  16. MOVICOL [Concomitant]
     Dosage: 1-2 SACHET-DOSES DAILY
     Dates: start: 20130612
  17. FOLIC ACID [Concomitant]
     Dosage: UNK
     Dates: start: 20130712

REACTIONS (1)
  - Parkinsonism [Not Recovered/Not Resolved]
